FAERS Safety Report 21373016 (Version 1)
Quarter: 2022Q3

REPORT INFORMATION
  Report Type: Report from Study
  Country: US (occurrence: US)
  Receive Date: 20220924
  Receipt Date: 20220924
  Transmission Date: 20221026
  Serious: Yes (Other)
  Sender: FDA-Public Use
  Company Number: US-ABBVIE-4129479

PATIENT
  Age: 63 Year
  Sex: Male

DRUGS (4)
  1. HUMIRA [Suspect]
     Active Substance: ADALIMUMAB
     Indication: Crohn^s disease
     Dosage: CITRATE FREE.
     Route: 058
  2. Moderna [Concomitant]
     Indication: COVID-19 immunisation
     Dosage: FIRST DOSE- ONE IN ONE DAY
     Route: 030
     Dates: start: 20210311, end: 20210311
  3. Moderna [Concomitant]
     Indication: COVID-19 immunisation
     Dosage: SECOND DOSE-ONE IN ONE DAY
     Route: 030
     Dates: start: 20210415, end: 20210415
  4. Moderna [Concomitant]
     Indication: COVID-19 immunisation
     Dosage: BOOSTER DOSE- ONE IN ONE DAY
     Dates: start: 20211201, end: 20211201

REACTIONS (10)
  - Myocardial infarction [Unknown]
  - Cough [Unknown]
  - Memory impairment [Unknown]
  - Illness [Unknown]
  - COVID-19 [Unknown]
  - Dyspepsia [Unknown]
  - Liver function test abnormal [Unknown]
  - Gastrointestinal haemorrhage [Unknown]
  - Gastrooesophageal reflux disease [Unknown]
  - Headache [Recovering/Resolving]

NARRATIVE: CASE EVENT DATE: 20220401
